FAERS Safety Report 4919417-1 (Version None)
Quarter: 2006Q1

REPORT INFORMATION
  Report Type: 
  Country: None (occurrence: None)
  Receive Date: 20060222
  Receipt Date: 20060116
  Transmission Date: 20060701
  Serious: Yes (Hospitalization, Other)
  Sender: FDA-Public Use
  Company Number: DE-MERCK-0602USA04578

PATIENT
  Age: 64 Year
  Sex: Female

DRUGS (10)
  1. FOSAMAX [Suspect]
     Route: 048
     Dates: start: 20031113, end: 20040101
  2. MAGNEROT CLASSIC [Concomitant]
     Route: 065
  3. WOBENZYM [Concomitant]
     Route: 065
  4. CALCIUM (UNSPECIFIED) [Concomitant]
     Route: 048
  5. METOPROLOL SUCCINATE [Concomitant]
     Route: 048
  6. NEURO LICHTENSTEIN N [Concomitant]
     Route: 065
  7. ETILEFRINE [Concomitant]
     Route: 065
  8. SORTIS [Concomitant]
     Route: 065
  9. SPASCUPREEL [Concomitant]
     Route: 065
  10. HOMEOPATHIC MEDICATIONS (UNSPECIFIED) [Concomitant]
     Route: 065

REACTIONS (5)
  - NASOPHARYNGITIS [None]
  - OSTEOMYELITIS [None]
  - OSTEONECROSIS [None]
  - RHINITIS [None]
  - SLEEP APNOEA SYNDROME [None]
